FAERS Safety Report 10329347 (Version 1)
Quarter: 2014Q3

REPORT INFORMATION
  Report Type: Spontaneous
  Country: US (occurrence: US)
  Receive Date: 20140721
  Receipt Date: 20140721
  Transmission Date: 20150326
  Serious: No
  Sender: FDA-Public Use
  Company Number: US-ENDO PHARMACEUTICALS INC.-TRIA20140002

PATIENT
  Sex: Male

DRUGS (1)
  1. TRIAMCINOLONE ACETONIDE CREAM 0.025 [Suspect]
     Active Substance: TRIAMCINOLONE ACETONIDE
     Indication: GENITAL DISORDER MALE
     Dosage: 2 APPLICATIONS
     Route: 061

REACTIONS (1)
  - Drug ineffective [Not Recovered/Not Resolved]
